FAERS Safety Report 6148240-8 (Version None)
Quarter: 2009Q2

REPORT INFORMATION
  Report Type: 
  Country: None (occurrence: None)
  Receive Date: 20090408
  Receipt Date: 20090330
  Transmission Date: 20091009
  Serious: Yes (Hospitalization)
  Sender: FDA-Public Use
  Company Number: RO-PFIZER INC-2009190233

PATIENT

DRUGS (2)
  1. STREPTOKINASE [Suspect]
     Indication: THROMBOLYSIS
  2. HEPARIN SODIUM [Suspect]

REACTIONS (1)
  - HEPATIC HAEMATOMA [None]
